FAERS Safety Report 10483310 (Version 4)
Quarter: 2019Q2

REPORT INFORMATION
  Report Type: Spontaneous
  Country: DE (occurrence: DE)
  Receive Date: 20140930
  Receipt Date: 20190510
  Transmission Date: 20190711
  Serious: Yes (Life-Threatening, Hospitalization, Other)
  Sender: FDA-Public Use
  Company Number: DE-AUROBINDO-AUR-APL-2014-10273

PATIENT

DRUGS (11)
  1. CARVEDILOL FILM-COATED TABLETS [Suspect]
     Active Substance: CARVEDILOL
     Indication: PRODUCT USED FOR UNKNOWN INDICATION
     Dosage: 70 TABLETS OF 25 MG (1750 MG), UNK
     Route: 048
  2. NICOTINIC ACID [Suspect]
     Active Substance: NIACIN
     Indication: PRODUCT USED FOR UNKNOWN INDICATION
     Dosage: 56 TABLETS OF 500 MG, 28 G, UNK
     Route: 048
  3. TORSEMIDE. [Suspect]
     Active Substance: TORSEMIDE
     Dosage: (50 TABLETS OF 10 MG) 500 MG, UNK ; IN TOTAL
     Route: 048
  4. CARVEDILOL FILM-COATED TABLETS [Suspect]
     Active Substance: CARVEDILOL
     Dosage: 70 TABLETS OF 25 MG (1750 MG), UNK
     Route: 048
  5. GABAPENTIN FILM-COATED TABLET [Suspect]
     Active Substance: GABAPENTIN
     Indication: PRODUCT USED FOR UNKNOWN INDICATION
     Dosage: 40 TABLETS OF 400 MG, 16 G, UNK
     Route: 048
  6. KETOPROFEN. [Suspect]
     Active Substance: KETOPROFEN
     Dosage: DAILY DOSE: 1.5 G GRAM(S) EVERY ; IN TOTAL
     Route: 048
  7. TORSEMIDE. [Suspect]
     Active Substance: TORSEMIDE
     Indication: PRODUCT USED FOR UNKNOWN INDICATION
     Dosage: 50 TABLETS OF 10 MG, 500 MG, UNK
     Route: 048
  8. KETOPROFEN. [Suspect]
     Active Substance: KETOPROFEN
     Indication: PRODUCT USED FOR UNKNOWN INDICATION
     Dosage: 30 TABLETS OF 50 MG, 1.5 G, UNK
     Route: 048
  9. AMLODIPINE [Suspect]
     Active Substance: AMLODIPINE BESYLATE
     Indication: PRODUCT USED FOR UNKNOWN INDICATION
     Dosage: 60 TABLETS OF 5 MG (300 MG), UNK
     Route: 048
  10. AMLODIPINE [Suspect]
     Active Substance: AMLODIPINE BESYLATE
     Dosage: 60 TABLETS OF 5 MG (300 MG), UNK
     Route: 048
  11. AMITRIPTYLINE [Suspect]
     Active Substance: AMITRIPTYLINE
     Indication: PRODUCT USED FOR UNKNOWN INDICATION
     Dosage: 60 TABLETS OF 100 MG, 6 G, UNK
     Route: 048

REACTIONS (22)
  - Suicide attempt [Recovered/Resolved]
  - Nodal rhythm [Recovered/Resolved]
  - Cardiac arrest [Recovered/Resolved]
  - Compartment syndrome [Unknown]
  - Ventricular hypokinesia [Recovered/Resolved]
  - Loss of consciousness [Recovered/Resolved]
  - Aspartate aminotransferase increased [Unknown]
  - Pulse absent [Recovered/Resolved]
  - Circulatory collapse [Recovered/Resolved]
  - Bradycardia [Recovered/Resolved]
  - Drug interaction [Unknown]
  - Blood creatine phosphokinase increased [Recovered/Resolved]
  - Sinoatrial block [Recovered/Resolved]
  - PO2 decreased [Recovered/Resolved]
  - PCO2 increased [Recovered/Resolved]
  - Alanine aminotransferase increased [Unknown]
  - Blood lactic acid increased [Recovered/Resolved]
  - Femoral artery dissection [Unknown]
  - Blood potassium increased [Unknown]
  - Cardiac failure [Recovered/Resolved]
  - Toxicity to various agents [Recovered/Resolved]
  - Intentional overdose [Recovered/Resolved]
